FAERS Safety Report 5363019-2 (Version None)
Quarter: 2007Q2

REPORT INFORMATION
  Report Type: 
  Country: None (occurrence: None)
  Receive Date: 20070618
  Receipt Date: 20070605
  Transmission Date: 20071010
  Serious: Yes (Hospitalization, Other)
  Sender: FDA-Public Use
  Company Number: 231595K07USA

PATIENT
  Age: 42 Year
  Sex: Female

DRUGS (1)
  1. REBIF [Suspect]
     Indication: MULTIPLE SCLEROSIS
     Dosage: SEE IMAGE
     Route: 058
     Dates: start: 20060828

REACTIONS (4)
  - CHOLELITHIASIS [None]
  - ESCHERICHIA INFECTION [None]
  - INFLUENZA LIKE ILLNESS [None]
  - LIVER ABSCESS [None]
